FAERS Safety Report 8634608 (Version 3)
Quarter: 2013Q4

REPORT INFORMATION
  Report Type: Spontaneous
  Country: US (occurrence: US)
  Receive Date: 20120626
  Receipt Date: 20131007
  Transmission Date: 20140711
  Serious: Yes (Hospitalization, Other)
  Sender: FDA-Public Use
  Company Number: US-BAYER-2012-061605

PATIENT
  Age: 47 Year
  Sex: Female

DRUGS (6)
  1. YASMIN [Suspect]
     Indication: ACNE
     Dosage: UNK
     Dates: start: 2004, end: 2011
  2. OCELLA [Suspect]
     Indication: ACNE
     Dosage: UNK
     Dates: start: 2004, end: 2011
  3. YAZ [Suspect]
     Indication: ACNE
     Dosage: UNK
     Dates: start: 2004, end: 2011
  4. SYNTHROID [Concomitant]
     Dosage: 75 MCG, DAILY
  5. AMPHETAMINE SALTS [Concomitant]
     Dosage: 20 MG, UNK
  6. TRAMADOL HYDROCHLORIDE [Concomitant]
     Dosage: 50 MG, UNK

REACTIONS (8)
  - Injury [None]
  - Deep vein thrombosis [None]
  - Cholelithiasis [None]
  - Transient ischaemic attack [None]
  - Pulmonary embolism [None]
  - Cerebrovascular accident [None]
  - Pain [None]
  - Pain [None]
